FAERS Safety Report 7401364-7 (Version None)
Quarter: 2011Q2

REPORT INFORMATION
  Report Type: 
  Country: None (occurrence: None)
  Receive Date: 20110407
  Receipt Date: 20110329
  Transmission Date: 20111010
  Serious: Yes (Hospitalization, Disabling, Other)
  Sender: FDA-Public Use
  Company Number: US-MERCK-0907USA00163

PATIENT
  Age: 50 Year
  Sex: Female
  Weight: 66 kg

DRUGS (5)
  1. FOSAMAX [Suspect]
     Route: 048
     Dates: start: 20040830, end: 20081102
  2. HORMONES (UNSPECIFIED) [Concomitant]
     Route: 065
     Dates: start: 19950101, end: 20081001
  3. ZOLOFT [Concomitant]
     Indication: DEPRESSION
     Route: 065
     Dates: start: 19950101
  4. FOSAMAX [Suspect]
     Indication: OSTEOPENIA
     Route: 048
     Dates: start: 19981116, end: 20010414
  5. FOSAMAX [Suspect]
     Route: 048
     Dates: start: 20010501, end: 20030901

REACTIONS (25)
  - HIP FRACTURE [None]
  - SPONDYLOLISTHESIS [None]
  - MUSCLE SPASMS [None]
  - DERMATITIS [None]
  - NEURODERMATITIS [None]
  - RADICULITIS LUMBOSACRAL [None]
  - OSTEOARTHRITIS [None]
  - ASTHENIA [None]
  - DEEP VEIN THROMBOSIS [None]
  - OSTEOLYSIS [None]
  - TRAUMATIC FRACTURE [None]
  - FATIGUE [None]
  - ACNE [None]
  - OSTEOPOROSIS [None]
  - FALL [None]
  - FEMUR FRACTURE [None]
  - HUMERUS FRACTURE [None]
  - SLEEP DISORDER [None]
  - ARTHRALGIA [None]
  - PAIN IN EXTREMITY [None]
  - BACK PAIN [None]
  - MYALGIA [None]
  - LOW TURNOVER OSTEOPATHY [None]
  - ARTHROPATHY [None]
  - GASTROOESOPHAGEAL REFLUX DISEASE [None]
